FAERS Safety Report 7328202-5 (Version None)
Quarter: 2011Q1

REPORT INFORMATION
  Report Type: 
  Country: None (occurrence: None)
  Receive Date: 20110224
  Receipt Date: 20110224
  Transmission Date: 20110831
  Serious: Yes (Other)
  Sender: FDA-Public Use
  Company Number: None

PATIENT
  Age: 21 Year
  Sex: Female

DRUGS (1)
  1. OCELLA [Suspect]
     Indication: PELVIC PAIN
     Dosage: 1 ACTIVE TAB PO DAILY
     Route: 048

REACTIONS (3)
  - MOOD ALTERED [None]
  - PRODUCT SUBSTITUTION ISSUE [None]
  - NAUSEA [None]
